FAERS Safety Report 8141320-7 (Version None)
Quarter: 2012Q1

REPORT INFORMATION
  Report Type: 
  Country: None (occurrence: None)
  Receive Date: 20120216
  Receipt Date: 20120201
  Transmission Date: 20120608
  Serious: Yes (Death)
  Sender: FDA-Public Use
  Company Number: IN-ROCHE-1036100

PATIENT
  Sex: Male
  Weight: 63 kg

DRUGS (4)
  1. MIRCERA [Suspect]
     Indication: RENAL FAILURE CHRONIC
  2. TORSEMIDE [Concomitant]
     Indication: RENAL FAILURE CHRONIC
     Route: 048
     Dates: start: 20110425
  3. AMLODIPINE [Concomitant]
     Indication: HYPERTENSION
     Route: 048
     Dates: start: 20111212
  4. SHELCAL [Concomitant]
     Route: 048
     Dates: start: 20101126

REACTIONS (1)
  - RENAL FAILURE CHRONIC [None]
